FAERS Safety Report 8224794-2 (Version None)
Quarter: 2012Q1

REPORT INFORMATION
  Report Type: 
  Country: None (occurrence: None)
  Receive Date: 20120320
  Receipt Date: 20120320
  Transmission Date: 20120608
  Serious: Yes (Other)
  Sender: FDA-Public Use
  Company Number: None

PATIENT
  Sex: Male
  Weight: 81.6475 kg

DRUGS (1)
  1. REMICADE [Suspect]
     Dosage: 400MG Q2W X 2 DOSE SQ
     Route: 058
     Dates: start: 20120101, end: 20120201

REACTIONS (4)
  - HEPATIC ENZYME INCREASED [None]
  - DRUG HYPERSENSITIVITY [None]
  - IMMOBILE [None]
  - INFUSION RELATED REACTION [None]
